FAERS Safety Report 4811207-3 (Version None)
Quarter: 2005Q4

REPORT INFORMATION
  Report Type: 
  Country: None (occurrence: None)
  Receive Date: 20051027
  Receipt Date: 20021028
  Transmission Date: 20060501
  Serious: Yes (Death, Hospitalization)
  Sender: FDA-Public Use
  Company Number: GB-SOLVAY-00205003432

PATIENT
  Age: 27434 Day
  Sex: Male
  Weight: 65 kg

DRUGS (1)
  1. PERINDOPRIL [Suspect]
     Indication: CARDIAC FAILURE CONGESTIVE
     Dosage: DAILY DOSE: 2 MILLIGRAM(S)
     Route: 048
     Dates: start: 20000318, end: 20010401

REACTIONS (4)
  - BLADDER DISORDER [None]
  - COMA [None]
  - HEAD INJURY [None]
  - SUBARACHNOID HAEMORRHAGE [None]
